FAERS Safety Report 9415113 (Version 1)
Quarter: 2013Q3

REPORT INFORMATION
  Report Type: Spontaneous
  Country: LB (occurrence: LB)
  Receive Date: 20130723
  Receipt Date: 20130723
  Transmission Date: 20140515
  Serious: Yes (Hospitalization)
  Sender: FDA-Public Use
  Company Number: LB-ABBOTT-13P-093-1119727-00

PATIENT
  Sex: Male
  Weight: 60 kg

DRUGS (1)
  1. HUMIRA [Suspect]
     Indication: CROHN^S DISEASE
     Dosage: 160MG, 80MG THEN 40MG EVERY OTHER WEEK
     Route: 058
     Dates: start: 20080304, end: 20130619

REACTIONS (4)
  - Gallbladder disorder [Unknown]
  - Abdominal pain [Unknown]
  - Cholecystectomy [Unknown]
  - Hepatic enzyme increased [Unknown]
